FAERS Safety Report 8559474-7 (Version None)
Quarter: 2012Q3

REPORT INFORMATION
  Report Type: 
  Country: None (occurrence: None)
  Receive Date: 20120802
  Receipt Date: 20120726
  Transmission Date: 20120928
  Serious: Yes (Hospitalization)
  Sender: FDA-Public Use
  Company Number: CN-JNJFOC-20120705901

PATIENT
  Sex: Female
  Weight: 54 kg

DRUGS (4)
  1. BORTEZOMIB [Suspect]
     Indication: LEUKAEMIA PLASMACYTIC
     Dosage: FREQUENCY: 1, INTERVAL:4
     Route: 042
     Dates: start: 20110304, end: 20110314
  2. DOXORUBICIN HYDROCHLORIDE [Suspect]
     Indication: LEUKAEMIA PLASMACYTIC
     Route: 042
     Dates: start: 20110304, end: 20110314
  3. DOXORUBICIN HYDROCHLORIDE [Suspect]
     Route: 042
     Dates: start: 20110304, end: 20110314
  4. DEXAMETHASONE [Suspect]
     Indication: LEUKAEMIA PLASMACYTIC
     Route: 065
     Dates: start: 20110304, end: 20110314

REACTIONS (2)
  - LUNG INFECTION [None]
  - ACUTE LEFT VENTRICULAR FAILURE [None]
